FAERS Safety Report 23562036 (Version 1)
Quarter: 2024Q1

REPORT INFORMATION
  Report Type: Report from Study
  Country: US (occurrence: US)
  Receive Date: 20240226
  Receipt Date: 20240226
  Transmission Date: 20240409
  Serious: Yes (Other)
  Sender: FDA-Public Use
  Company Number: US-ABBVIE-5646426

PATIENT
  Age: 52 Year
  Sex: Female

DRUGS (1)
  1. SKYRIZI [Suspect]
     Active Substance: RISANKIZUMAB-RZAA
     Indication: Psoriatic arthropathy
     Route: 058
     Dates: start: 20220804

REACTIONS (6)
  - Liposuction [Recovering/Resolving]
  - Weight decreased [Recovering/Resolving]
  - Ear pain [Unknown]
  - Fatigue [Unknown]
  - Chills [Unknown]
  - Asthenia [Unknown]

NARRATIVE: CASE EVENT DATE: 20231130
